FAERS Safety Report 4690210-0 (Version None)
Quarter: 2005Q2

REPORT INFORMATION
  Report Type: 
  Country: None (occurrence: None)
  Receive Date: 20050613
  Receipt Date: 20050531
  Transmission Date: 20051028
  Serious: Yes (Other)
  Sender: FDA-Public Use
  Company Number: 2005082728

PATIENT
  Sex: 0

DRUGS (1)
  1. CAMPTOSAR [Suspect]
     Indication: OESOPHAGEAL CARCINOMA
     Dosage: UNKNOWN
     Route: 065

REACTIONS (2)
  - ASPIRATION [None]
  - DYSPHAGIA [None]
